FAERS Safety Report 17487717 (Version 1)
Quarter: 2020Q1

REPORT INFORMATION
  Report Type: Spontaneous
  Country: FR (occurrence: FR)
  Receive Date: 20200303
  Receipt Date: 20200303
  Transmission Date: 20200409
  Serious: Yes (Other)
  Sender: FDA-Public Use
  Company Number: FR-PFIZER INC-2020087856

PATIENT
  Age: 43 Year
  Sex: Male

DRUGS (6)
  1. AERIUS (DESLORATADINE) [Suspect]
     Active Substance: DESLORATADINE
     Indication: PRURITUS
     Dosage: UNK
     Route: 061
     Dates: start: 20191017
  2. LOCOID [Suspect]
     Active Substance: HYDROCORTISONE BUTYRATE
     Indication: PRURITUS
     Dosage: UNK
     Route: 061
     Dates: start: 20191022
  3. IBUPROFEN. [Suspect]
     Active Substance: IBUPROFEN
     Indication: ODYNOPHAGIA
     Dosage: UNK
     Dates: start: 20191017
  4. PIVALONE (TIXOCORTOL PIVALATE) [Suspect]
     Active Substance: TIXOCORTOL PIVALATE
     Indication: ODYNOPHAGIA
     Dosage: UNK
     Route: 055
     Dates: start: 20191017
  5. ECONAZOLE. [Suspect]
     Active Substance: ECONAZOLE NITRATE
     Indication: PRURITUS
     Dosage: UNK
     Route: 061
     Dates: start: 20191017
  6. MIOREL [THIOCOLCHICOSIDE] [Suspect]
     Active Substance: THIOCOLCHICOSIDE
     Indication: PAIN
     Dosage: UNK
     Route: 048
     Dates: start: 20191017

REACTIONS (1)
  - Acute generalised exanthematous pustulosis [Recovered/Resolved]

NARRATIVE: CASE EVENT DATE: 20191025
